FAERS Safety Report 26092490 (Version 1)
Quarter: 2025Q4

REPORT INFORMATION
  Report Type: Spontaneous
  Country: EU (occurrence: EU)
  Receive Date: 20251126
  Receipt Date: 20251126
  Transmission Date: 20260118
  Serious: Yes (Hospitalization)
  Sender: PFIZER
  Company Number: None

PATIENT
  Age: 75 Year
  Sex: Female
  Weight: 70 kg

DRUGS (4)
  1. MEKTOVI [Suspect]
     Active Substance: BINIMETINIB
     Indication: Metastatic malignant melanoma
     Dosage: 45 MG EVERY 12 HOURS
     Route: 048
     Dates: start: 20250416, end: 20250911
  2. BRAFTOVI [Suspect]
     Active Substance: ENCORAFENIB
     Indication: Metastatic malignant melanoma
     Dosage: 450 MG EVERY 24 HOURS
     Route: 048
     Dates: start: 20250416, end: 20250911
  3. PIPERACILLIN SODIUM\TAZOBACTAM SODIUM [Suspect]
     Active Substance: PIPERACILLIN SODIUM\TAZOBACTAM SODIUM
     Indication: Escherichia bacteraemia
     Dosage: 4000 MG /500MG SINGLE DOSE PER TREATMENT CHANGE
     Route: 042
     Dates: start: 20250827, end: 20250827
  4. ERTAPENEM [Suspect]
     Active Substance: ERTAPENEM
     Indication: Escherichia bacteraemia
     Dosage: 1000 MG EVERY 24 HOURS
     Route: 042
     Dates: start: 20250828, end: 20250902

REACTIONS (1)
  - Clostridium difficile colitis [Recovered/Resolved]

NARRATIVE: CASE EVENT DATE: 20250909
